FAERS Safety Report 26193695 (Version 1)
Quarter: 2025Q4

REPORT INFORMATION
  Report Type: Spontaneous
  Country: US (occurrence: None)
  Receive Date: 20251223
  Receipt Date: 20251223
  Transmission Date: 20260117
  Serious: Yes (Hospitalization)
  Sender: FDA-CTU
  Company Number: None

PATIENT
  Age: 44 Year
  Sex: Male
  Weight: 76.1 kg

DRUGS (11)
  1. TRIKAFTA [Suspect]
     Active Substance: ELEXACAFTOR\IVACAFTOR\TEZACAFTOR
     Indication: Cystic fibrosis
     Dosage: 3 TABLETS MG DAILY ORAL
     Route: 048
     Dates: start: 20200325
  2. ALBUTEROL 0.083% INH SOL [Concomitant]
  3. ATOMOXETINE 18MG CAPS [Concomitant]
  4. BUDESONIDE 0.5MG/2ML INH SOL [Concomitant]
  5. BUPROPION 100MG TAB [Concomitant]
  6. DEKAS PLUS SOFTGELS [Concomitant]
  7. DOXYCYCLINE HYC 1 00MG CAP [Concomitant]
  8. HYPERSAL 7% SOL [Concomitant]
  9. PERTZYE 16000 U CAPS [Concomitant]
  10. INSULIN ASPART [Concomitant]
     Active Substance: INSULIN ASPART
  11. PULMOZYME 1 MG/ML SOL [Concomitant]

REACTIONS (2)
  - Pneumonia [None]
  - Product distribution issue [None]

NARRATIVE: CASE EVENT DATE: 20251219
